FAERS Safety Report 20894502 (Version 1)
Quarter: 2022Q2

REPORT INFORMATION
  Report Type: Spontaneous
  Country: US (occurrence: None)
  Receive Date: 20220527
  Receipt Date: 20220527
  Transmission Date: 20220721
  Serious: Yes (unspecified)
  Sender: FDA-Public Use
  Company Number: None

PATIENT
  Age: 41 Year
  Sex: Female
  Weight: 58.3 kg

DRUGS (7)
  1. BLEOMYCIN [Suspect]
     Active Substance: BLEOMYCIN SULFATE
     Indication: Hodgkin^s disease
     Dosage: FREQUENCY : EVERY OTHER WEEK;?
     Route: 042
     Dates: start: 20220526
  2. APREPITANT [Concomitant]
     Active Substance: APREPITANT
     Dates: start: 20220526
  3. PALONOSETRON [Concomitant]
     Active Substance: PALONOSETRON
     Dates: start: 20220526
  4. DEXAMETHASONE [Concomitant]
     Active Substance: DEXAMETHASONE
     Dates: start: 20220512
  5. DOXORUBICIN [Concomitant]
     Active Substance: DOXORUBICIN
     Dates: start: 20220512
  6. VINBLASTINE [Concomitant]
     Active Substance: VINBLASTINE
     Dates: start: 20220512
  7. DACARBAZINE [Concomitant]
     Active Substance: DACARBAZINE
     Dates: start: 20220512

REACTIONS (1)
  - Feeling hot [None]

NARRATIVE: CASE EVENT DATE: 20220526
